FAERS Safety Report 9084095 (Version 1)
Quarter: 2013Q1

REPORT INFORMATION
  Report Type: Report from Study
  Country: US (occurrence: US)
  Receive Date: 20130131
  Receipt Date: 20130131
  Transmission Date: 20140127
  Serious: No
  Sender: FDA-Public Use
  Company Number: US-ABBOTT-12P-163-0986454-00

PATIENT
  Age: 42 Year
  Sex: Female

DRUGS (11)
  1. HUMIRA [Suspect]
     Indication: CROHN^S DISEASE
     Dates: start: 201206
  2. LOPERAMIDE [Concomitant]
     Indication: BOWEL MOVEMENT IRREGULARITY
  3. CITALOPRAM [Concomitant]
     Indication: DEPRESSION
     Dosage: 20MG DAILY
  4. CITALOPRAM [Concomitant]
     Indication: ANXIETY
  5. TRAMADOL ER [Concomitant]
     Indication: PAIN
     Dosage: 200MG EVERY DAY
  6. VIVELLE HORMONE PATCH [Concomitant]
     Indication: HORMONE REPLACEMENT THERAPY
     Dosage: 0.1MG CHANGED TWO TIMES A WEEK
  7. IMODIUM [Concomitant]
     Indication: PRODUCT USED FOR UNKNOWN INDICATION
     Dosage: 2 TO 4 TIMES A DAY
  8. HYDROCODONE [Concomitant]
     Indication: PAIN
     Dosage: 10-500MG
  9. DEXILANT [Concomitant]
     Indication: GASTROOESOPHAGEAL REFLUX DISEASE
     Dosage: 60MG EVERY DAY
  10. MULTIVITAMIN [Concomitant]
     Indication: VITAMIN SUPPLEMENTATION
     Dosage: EVERY DAY
  11. VITAMIN D [Concomitant]
     Indication: VITAMIN SUPPLEMENTATION
     Dosage: EVERY DAY

REACTIONS (6)
  - Bile output increased [Recovering/Resolving]
  - Diarrhoea [Unknown]
  - Flatulence [Unknown]
  - Ear infection [Unknown]
  - Pharyngitis [Unknown]
  - Hernia [Unknown]
